FAERS Safety Report 5982230-0 (Version None)
Quarter: 2008Q4

REPORT INFORMATION
  Report Type: 
  Country: None (occurrence: None)
  Receive Date: 20081208
  Receipt Date: 20081125
  Transmission Date: 20090506
  Serious: Yes (Other)
  Sender: FDA-Public Use
  Company Number: US-JNJFOC-20081200723

PATIENT
  Age: 75 Year
  Sex: Female
  Weight: 81.65 kg

DRUGS (5)
  1. TYLENOL (CAPLET) [Suspect]
     Route: 048
  2. TYLENOL (CAPLET) [Suspect]
     Indication: ARTHRITIS
     Route: 048
  3. PEPCID AC [Suspect]
  4. PEPCID AC [Suspect]
     Indication: DYSPEPSIA
  5. METFORMIN HCL [Suspect]
     Indication: DIABETES MELLITUS

REACTIONS (2)
  - ASTHMA [None]
  - MALAISE [None]
